FAERS Safety Report 5890250-X (Version None)
Quarter: 2008Q3

REPORT INFORMATION
  Report Type: 
  Country: None (occurrence: None)
  Receive Date: 20080919
  Receipt Date: 20080911
  Transmission Date: 20090109
  Serious: Yes (Hospitalization)
  Sender: FDA-Public Use
  Company Number: FR-PFIZER INC-2008076691

PATIENT
  Sex: Female

DRUGS (10)
  1. ZOLOFT [Suspect]
     Route: 048
     Dates: start: 20080809, end: 20080818
  2. NORSET [Suspect]
     Dosage: TEXT:1 DOSAGE FORM
     Route: 048
     Dates: start: 20080818, end: 20080819
  3. ATENOLOL [Concomitant]
  4. DAFALGAN [Concomitant]
  5. FLECAINE [Concomitant]
  6. ALL OTHER THERAPEUTIC PRODUCTS [Concomitant]
  7. TRAMADOL HYDROCHLORIDE AND ACETAMINOPHEN [Concomitant]
  8. LASIX [Concomitant]
  9. PREVISCAN [Concomitant]
  10. MEGACE [Concomitant]

REACTIONS (3)
  - CHOLESTASIS [None]
  - JAUNDICE [None]
  - PRURITUS [None]
